FAERS Safety Report 16764035 (Version 2)
Quarter: 2019Q3

REPORT INFORMATION
  Report Type: Report from Study
  Country: KR (occurrence: KR)
  Receive Date: 20190902
  Receipt Date: 20190910
  Transmission Date: 20191005
  Serious: No
  Sender: FDA-Public Use
  Company Number: PHHY2019KR190201

PATIENT
  Age: 79 Year
  Sex: Female

DRUGS (10)
  1. ENTRESTO [Suspect]
     Active Substance: SACUBITRIL\VALSARTAN
     Indication: CARDIAC FAILURE CHRONIC
     Dosage: 50 MG, BID
     Route: 048
     Dates: start: 20190310, end: 20190407
  2. XARELTO [Concomitant]
     Active Substance: RIVAROXABAN
     Indication: CARDIAC FAILURE CHRONIC
     Dosage: UNK MG, UNK
     Route: 065
     Dates: start: 20170420
  3. ANORO ELLIPTA [Concomitant]
     Active Substance: UMECLIDINIUM BROMIDE\VILANTEROL TRIFENATATE
     Indication: CHRONIC OBSTRUCTIVE PULMONARY DISEASE
     Dosage: UNK
     Route: 065
     Dates: start: 20181203
  4. BIOLACTO [Concomitant]
     Indication: OESOPHAGITIS
     Dosage: UNK
     Route: 065
     Dates: start: 20190423
  5. SYNTHYROXINE [Concomitant]
     Active Substance: LEVOTHYROXINE SODIUM
     Indication: THYROIDECTOMY
     Dosage: UNK
     Route: 065
     Dates: start: 20070823
  6. BESZYME [Concomitant]
     Indication: OESOPHAGITIS
     Dosage: UNK
     Route: 065
     Dates: start: 20190419, end: 20190421
  7. BESZYME [Concomitant]
     Dosage: UNK
     Route: 065
     Dates: start: 20190423
  8. CONCOR [Concomitant]
     Active Substance: BISOPROLOL FUMARATE
     Indication: CARDIAC FAILURE CHRONIC
     Dosage: UNK
     Route: 065
     Dates: start: 20100401
  9. ALDACTONE [Concomitant]
     Active Substance: SPIRONOLACTONE
     Indication: CARDIAC FAILURE CHRONIC
     Dosage: UNK
     Route: 065
     Dates: start: 20180730
  10. MAGNESIUM OXIDE. [Concomitant]
     Active Substance: MAGNESIUM OXIDE
     Indication: OESOPHAGITIS
     Dosage: UNK
     Route: 065
     Dates: start: 20190423

REACTIONS (3)
  - Large intestine benign neoplasm [Recovering/Resolving]
  - Irritable bowel syndrome [Recovering/Resolving]
  - Chronic gastritis [Recovering/Resolving]

NARRATIVE: CASE EVENT DATE: 20190405
